FAERS Safety Report 7966074-6 (Version None)
Quarter: 2011Q4

REPORT INFORMATION
  Report Type: 
  Country: None (occurrence: None)
  Receive Date: 20111208
  Receipt Date: 20111201
  Transmission Date: 20120403
  Serious: Yes (Hospitalization, Other)
  Sender: FDA-Public Use
  Company Number: US-ABBOTT-11P-163-0879949-00

PATIENT
  Sex: Male
  Weight: 90.8 kg

DRUGS (3)
  1. PLAVIX [Concomitant]
     Indication: CORONARY ARTERY DISEASE
  2. LIPITOR [Concomitant]
     Indication: CORONARY ARTERY DISEASE
  3. ANDROGEL [Suspect]
     Indication: BLOOD TESTOSTERONE DECREASED
     Dosage: ONE PACKET A DAY
     Route: 061
     Dates: start: 20110817, end: 20111101

REACTIONS (8)
  - CHEST PAIN [None]
  - HYPERHIDROSIS [None]
  - GAIT DISTURBANCE [None]
  - MYOCARDIAL INFARCTION [None]
  - VOMITING [None]
  - FALL [None]
  - ARTERIAL OCCLUSIVE DISEASE [None]
  - ASTHENIA [None]
